FAERS Safety Report 5271791-5 (Version None)
Quarter: 2007Q1

REPORT INFORMATION
  Report Type: 
  Country: None (occurrence: None)
  Receive Date: 20061214
  Receipt Date: 20060818
  Transmission Date: 20070707
  Serious: Yes (Hospitalization, Other)
  Sender: FDA-Public Use
  Company Number: 2006109310

PATIENT
  Age: 69 Year
  Sex: Female
  Weight: 63.5036 kg

DRUGS (2)
  1. BEXTRA [Suspect]
     Indication: ARTHRITIS
     Dates: start: 20021026, end: 20031214
  2. BEXTRA [Suspect]
     Indication: PAIN
     Dates: start: 20021026, end: 20031214

REACTIONS (1)
  - MYOCARDIAL INFARCTION [None]
